FAERS Safety Report 9934891 (Version 1)
Quarter: 2014Q1

REPORT INFORMATION
  Report Type: Spontaneous
  Country: US (occurrence: US)
  Receive Date: 20140228
  Receipt Date: 20140228
  Transmission Date: 20141002
  Serious: Yes (Other)
  Sender: FDA-Public Use
  Company Number: US-ASTRAZENECA-2014SE12715

PATIENT
  Age: 42 Year
  Sex: Female
  Weight: 74.8 kg

DRUGS (12)
  1. SYMBICORT [Suspect]
     Indication: CHRONIC OBSTRUCTIVE PULMONARY DISEASE
     Dosage: 320MCG BID
     Route: 055
     Dates: start: 2006
  2. SYMBICORT [Suspect]
     Indication: CHRONIC OBSTRUCTIVE PULMONARY DISEASE
     Dosage: 160/4.5MCG, 2 PUFFS BID
     Route: 055
     Dates: start: 20140211
  3. LISINOPRIL [Suspect]
     Indication: BLOOD PRESSURE ABNORMAL
     Route: 048
     Dates: start: 2006
  4. ALBUTEROL [Concomitant]
     Indication: DYSPNOEA
     Dosage: PRN
     Route: 055
     Dates: start: 1996
  5. XANAX [Concomitant]
     Indication: ANXIETY
     Dates: start: 1992
  6. AMBIEN [Concomitant]
     Indication: INSOMNIA
     Dates: start: 1994
  7. HYDROXIZINE [Concomitant]
     Indication: MULTIPLE ALLERGIES
     Dates: start: 2006
  8. HYDROXIZINE [Concomitant]
     Indication: URTICARIA
     Dates: start: 2006
  9. LIPITOR [Concomitant]
     Indication: BLOOD CHOLESTEROL ABNORMAL
     Dosage: DAILY
     Dates: start: 2013
  10. PROTONIX [Concomitant]
     Indication: GASTROOESOPHAGEAL REFLUX DISEASE
     Dates: start: 2006
  11. SINGULAIR [Concomitant]
     Indication: MULTIPLE ALLERGIES
     Dates: start: 2006
  12. SINGULAIR [Concomitant]
     Indication: ASTHMA
     Dates: start: 2006

REACTIONS (9)
  - Breast hyperplasia [Unknown]
  - Dyspnoea [Not Recovered/Not Resolved]
  - Dyspnoea [Not Recovered/Not Resolved]
  - Blood cholesterol increased [Unknown]
  - Rheumatoid arthritis [Unknown]
  - Arthralgia [Unknown]
  - Wheezing [Not Recovered/Not Resolved]
  - Device misuse [Unknown]
  - Drug dose omission [Not Recovered/Not Resolved]
